FAERS Safety Report 25530988 (Version 2)
Quarter: 2025Q3

REPORT INFORMATION
  Report Type: Spontaneous
  Country: US (occurrence: US)
  Receive Date: 20250708
  Receipt Date: 20250909
  Transmission Date: 20251021
  Serious: Yes (Other)
  Sender: INCYTE
  Company Number: US-INCYTE CORPORATION-2025IN007106

PATIENT
  Age: 54 Year

DRUGS (1)
  1. JAKAFI [Suspect]
     Active Substance: RUXOLITINIB
     Indication: Disease susceptibility
     Dosage: 15 MILLIGRAM, BID

REACTIONS (4)
  - Neuropathy peripheral [Unknown]
  - Gastritis [Unknown]
  - Gastrointestinal wall thickening [Unknown]
  - Off label use [Unknown]
